FAERS Safety Report 24766262 (Version 1)
Quarter: 2024Q4

REPORT INFORMATION
  Report Type: Spontaneous
  Country: US (occurrence: US)
  Receive Date: 20241223
  Receipt Date: 20241223
  Transmission Date: 20250115
  Serious: Yes (Other)
  Sender: MYLAN
  Company Number: US-MYLANLABS-2024M1113556

PATIENT
  Age: 36 Year
  Sex: Female

DRUGS (1)
  1. TAMOXIFEN [Suspect]
     Active Substance: TAMOXIFEN
     Indication: Hormone receptor positive breast cancer
     Dosage: UNK
     Route: 065

REACTIONS (1)
  - Ovarian hyperstimulation syndrome [Recovered/Resolved]
